FAERS Safety Report 5880150-3 (Version None)
Quarter: 2008Q3

REPORT INFORMATION
  Report Type: 
  Country: None (occurrence: None)
  Receive Date: 20080910
  Receipt Date: 20080910
  Transmission Date: 20090109
  Serious: Yes (Disabling)
  Sender: FDA-Public Use
  Company Number: None

PATIENT
  Sex: Female
  Weight: 12 kg

DRUGS (6)
  1. PEG-ASPARIGINASE 750 1 0 PER ML ENZON PHARMACEUTICALS [Suspect]
     Indication: ACUTE LYMPHOCYTIC LEUKAEMIA
     Dosage: 1325 UNITS ONCE IM
     Route: 030
     Dates: start: 20080819, end: 20080819
  2. INTATHECAL METHOTREXATE [Concomitant]
  3. VINCRISTINE [Concomitant]
  4. PROPOFOL [Concomitant]
  5. MERCAPTOPURINE [Concomitant]
  6. MERCAPTOPURINE [Concomitant]

REACTIONS (5)
  - ERYTHEMA MULTIFORME [None]
  - PYREXIA [None]
  - SWELLING FACE [None]
  - THERAPEUTIC RESPONSE DECREASED [None]
  - URTICARIA [None]
